FAERS Safety Report 17822994 (Version 1)
Quarter: 2020Q2

REPORT INFORMATION
  Report Type: Spontaneous
  Country: US (occurrence: US)
  Receive Date: 20200522
  Receipt Date: 20200522
  Transmission Date: 20200714
  Serious: Yes (Other)
  Sender: FDA-Public Use
  Company Number: None

PATIENT
  Age: 76 Year
  Sex: Female

DRUGS (1)
  1. FAMOTIDINE. [Suspect]
     Active Substance: FAMOTIDINE
     Route: 048
     Dates: start: 20200416, end: 20200416

REACTIONS (5)
  - Middle insomnia [None]
  - Paraesthesia [None]
  - Chest pain [None]
  - Chest discomfort [None]
  - Hypoaesthesia [None]

NARRATIVE: CASE EVENT DATE: 20200416
